FAERS Safety Report 7536582-0 (Version None)
Quarter: 2011Q2

REPORT INFORMATION
  Report Type: 
  Country: None (occurrence: None)
  Receive Date: 20110608
  Receipt Date: 20110608
  Transmission Date: 20111010
  Serious: Yes (Other)
  Sender: FDA-Public Use
  Company Number: None

PATIENT
  Sex: Female

DRUGS (1)
  1. BACLOFEN [Suspect]
     Dosage: 1 QID PO
     Route: 048
     Dates: start: 20110310, end: 20110604

REACTIONS (8)
  - NEURITIS [None]
  - SPEECH DISORDER [None]
  - FALL [None]
  - SOMNAMBULISM [None]
  - BALANCE DISORDER [None]
  - MUSCULOSKELETAL STIFFNESS [None]
  - NERVOUS SYSTEM DISORDER [None]
  - RIB FRACTURE [None]
